FAERS Safety Report 8255859 (Version 2)
Quarter: 2012Q4

REPORT INFORMATION
  Report Type: Spontaneous
  Country: US (occurrence: None)
  Receive Date: 20111109
  Receipt Date: 20120831
  Transmission Date: 20130627
  Serious: Yes (Other)
  Sender: FDA-Public Use
  Company Number: ADR-2011-10737

PATIENT
  Age: 13 Year
  Sex: Female

DRUGS (2)
  1. LIORESAL [Suspect]
     Indication: CEREBRAL PALSY
     Dosage: 88.34 MCG. DAILY, INTRA
  2. LIORESAL [Suspect]
     Indication: SPASTICITY
     Dosage: 88.34 MCG. DAILY, INTRA

REACTIONS (5)
  - Implant site effusion [None]
  - Hypersensitivity [None]
  - Implant site infection [None]
  - Device dislocation [None]
  - Vascular access complication [None]
